FAERS Safety Report 11799528 (Version 2)
Quarter: 2016Q1

REPORT INFORMATION
  Report Type: Spontaneous
  Country: AU (occurrence: AU)
  Receive Date: 20151203
  Receipt Date: 20160304
  Transmission Date: 20160525
  Serious: Yes (Other)
  Sender: FDA-Public Use
  Company Number: PHHY2015AU155789

PATIENT
  Age: 54 Year
  Sex: Male

DRUGS (3)
  1. GLIVEC [Suspect]
     Active Substance: IMATINIB MESYLATE
     Indication: ACUTE LYMPHOCYTIC LEUKAEMIA
     Dosage: UNK
     Route: 065
  2. DASATINIB [Suspect]
     Active Substance: DASATINIB
     Indication: PRODUCT USED FOR UNKNOWN INDICATION
     Dosage: UNK
     Route: 065
  3. NILOTINIB [Suspect]
     Active Substance: NILOTINIB
     Indication: ACUTE LYMPHOCYTIC LEUKAEMIA
     Dosage: UNK
     Route: 065

REACTIONS (13)
  - Acute lymphocytic leukaemia recurrent [Unknown]
  - Neutrophil count decreased [Unknown]
  - Blood calcium increased [Unknown]
  - Blood bicarbonate decreased [Unknown]
  - Chronic hepatitis B [Unknown]
  - Drug hypersensitivity [Unknown]
  - Haemoglobin decreased [Unknown]
  - Protein total increased [Unknown]
  - Mean platelet volume decreased [Unknown]
  - Drug resistance [Unknown]
  - Red cell distribution width increased [Unknown]
  - Lymphocyte count increased [Unknown]
  - Electrocardiogram QT prolonged [Unknown]

NARRATIVE: CASE EVENT DATE: 20150825
